FAERS Safety Report 10007947 (Version 1)
Quarter: 2014Q1

REPORT INFORMATION
  Report Type: Spontaneous
  Country: US (occurrence: None)
  Receive Date: 20140228
  Receipt Date: 20140228
  Transmission Date: 20141002
  Serious: Yes (Other)
  Sender: FDA-Public Use
  Company Number: 225392

PATIENT
  Age: 72 Year
  Sex: Male

DRUGS (1)
  1. PICATO [Suspect]
     Indication: ACTINIC KERATOSIS
     Route: 061
     Dates: start: 20140113

REACTIONS (6)
  - Application site erythema [None]
  - Application site pain [None]
  - Application site swelling [None]
  - Drug dispensing error [None]
  - Drug dispensing error [None]
  - Incorrect dose administered [None]
